FAERS Safety Report 24456791 (Version 2)
Quarter: 2025Q1

REPORT INFORMATION
  Report Type: Report from Study
  Country: EG (occurrence: EG)
  Receive Date: 20241018
  Receipt Date: 20250213
  Transmission Date: 20250408
  Serious: No
  Sender: SANDOZ
  Company Number: EG-SANDOZ-SDZ2024EG087820

PATIENT
  Sex: Male
  Weight: 59.3 kg

DRUGS (2)
  1. OMNITROPE [Suspect]
     Active Substance: SOMATROPIN
     Indication: Growth hormone deficiency
     Route: 058
     Dates: start: 20230601
  2. OMNITROPE [Suspect]
     Active Substance: SOMATROPIN
     Dosage: 2.3 MG, QD
     Route: 058

REACTIONS (6)
  - Pain in extremity [Unknown]
  - Therapy change [Unknown]
  - Off label use [Unknown]
  - Product prescribing error [Unknown]
  - Drug administered in wrong device [Unknown]
  - Device mechanical issue [Unknown]
